FAERS Safety Report 10570584 (Version 2)
Quarter: 2015Q1

REPORT INFORMATION
  Report Type: Spontaneous
  Country: DE (occurrence: DE)
  Receive Date: 20141107
  Receipt Date: 20150302
  Transmission Date: 20150720
  Serious: Yes (Hospitalization, Other)
  Sender: FDA-Public Use
  Company Number: DE-UCBSA-2014016840

PATIENT
  Age: 64 Year
  Sex: Female

DRUGS (8)
  1. LACOSAMIDE [Concomitant]
     Active Substance: LACOSAMIDE
     Indication: EPILEPSY
     Dosage: 100 MG, 2X/DAY (BID)
     Route: 048
     Dates: start: 201205, end: 201410
  2. KEPPRA [Suspect]
     Active Substance: LEVETIRACETAM
     Dosage: 1750 MG DAILY
     Route: 048
     Dates: start: 201410
  3. ATORVASTATIN [Concomitant]
     Active Substance: ATORVASTATIN
     Indication: BLOOD CHOLESTEROL INCREASED
     Dosage: 80 MG, ONCE DAILY (QD)
     Route: 048
  4. TOREM [Concomitant]
     Active Substance: TORSEMIDE
     Indication: HYPERTENSION
     Dosage: PAUSE; STARTED FOR YEARS
  5. CONCOR [Concomitant]
     Active Substance: BISOPROLOL FUMARATE
     Indication: CORONARY ARTERY DISEASE
     Dosage: 5 MG, ONCE DAILY (QD)
     Route: 048
  6. ACETYLSALICYL ACID [Concomitant]
     Indication: PRODUCT USED FOR UNKNOWN INDICATION
     Dosage: 100 MG, ONCE DAILY (QD)
     Route: 048
  7. DELIX [Concomitant]
     Active Substance: RAMIPRIL
     Indication: HYPERTENSION
     Dosage: 2.5 (UNIT UNKNOWN) ONCE DAILY
     Route: 048
  8. KEPPRA [Suspect]
     Active Substance: LEVETIRACETAM
     Indication: EPILEPSY
     Dosage: 2000 MG, 2X/DAY (BID)
     Route: 048
     Dates: start: 201205, end: 201410

REACTIONS (14)
  - Leukopenia [Unknown]
  - Seizure [Unknown]
  - Oedema peripheral [Unknown]
  - Autoimmune hepatitis [Recovering/Resolving]
  - Erythroid series abnormal [Unknown]
  - Hepatic enzyme increased [Unknown]
  - Dyspnoea exertional [Unknown]
  - Pleural effusion [Unknown]
  - Overdose [Unknown]
  - Polyuria [Unknown]
  - Blood creatine phosphokinase increased [Recovering/Resolving]
  - Pain [Unknown]
  - Fatigue [Unknown]
  - Off label use [Unknown]

NARRATIVE: CASE EVENT DATE: 201205
